FAERS Safety Report 8267580-X (Version None)
Quarter: 2012Q2

REPORT INFORMATION
  Report Type: 
  Country: None (occurrence: None)
  Receive Date: 20120409
  Receipt Date: 20120329
  Transmission Date: 20120825
  Serious: Yes (Hospitalization, Other)
  Sender: FDA-Public Use
  Company Number: JP-GENZYME-THYM-1003200

PATIENT
  Sex: Female
  Weight: 51 kg

DRUGS (54)
  1. SULFAMETHOXAZOLE W [Concomitant]
     Indication: ANTIFUNGAL PROPHYLAXIS
     Dosage: UNK
     Route: 065
     Dates: start: 20110330, end: 20110403
  2. ACYCLOVIR [Concomitant]
     Indication: ANTIVIRAL PROPHYLAXIS
     Dosage: UNK
     Route: 065
     Dates: start: 20110330, end: 20110630
  3. CARBAZOCHROME SODIUM SULFONATE [Concomitant]
     Indication: HAEMORRHAGE PROPHYLAXIS
     Dosage: UNK
     Route: 065
     Dates: start: 20101019, end: 20110512
  4. TACROLIMUS [Concomitant]
     Dosage: UNK
     Route: 065
     Dates: start: 20110621, end: 20110915
  5. HYDROCORTISONE SODIUM SUCCINATE [Concomitant]
     Indication: PROPHYLAXIS OF NAUSEA AND VOMITING
     Dosage: UNK
     Route: 065
     Dates: start: 20110331, end: 20110401
  6. MESNA [Concomitant]
     Indication: PROPHYLAXIS
     Dosage: UNK
     Route: 065
     Dates: start: 20110331, end: 20110403
  7. HYDROXYZINE PAMOATE [Concomitant]
     Indication: PROPHYLAXIS OF NAUSEA AND VOMITING
     Dosage: UNK
     Route: 065
     Dates: start: 20110404, end: 20110405
  8. CEFTRIAXONE SODIUM [Concomitant]
     Indication: PROPHYLAXIS
     Dosage: UNK
     Route: 065
     Dates: start: 20110519, end: 20110526
  9. TOTAL BODY IRRADIATION [Concomitant]
     Dosage: UNK
     Route: 065
     Dates: start: 20110621, end: 20110621
  10. SULFAMETHOXAZOLE W [Concomitant]
     Dosage: UNK
     Route: 065
     Dates: start: 20110429, end: 20110616
  11. SENNOSIDE [Concomitant]
     Indication: CONSTIPATION PROPHYLAXIS
     Dosage: UNK
     Route: 065
     Dates: start: 20100126, end: 20110406
  12. OMEPRAZOLE [Concomitant]
     Indication: PROPHYLAXIS AGAINST GASTROINTESTINAL ULCER
     Dosage: UNK
     Route: 065
     Dates: start: 20110508, end: 20110630
  13. TACROLIMUS [Concomitant]
     Dosage: UNK
     Route: 065
     Dates: start: 20110404, end: 20110606
  14. GRANISETRON HCL [Concomitant]
     Dosage: UNK
     Route: 065
     Dates: start: 20110619, end: 20110620
  15. FUROSEMIDE [Concomitant]
     Indication: PROPHYLAXIS
     Dosage: UNK
     Route: 065
     Dates: start: 20110331, end: 20110403
  16. HYDROXYZINE PAMOATE [Concomitant]
     Dosage: UNK
     Route: 065
     Dates: start: 20110621, end: 20110622
  17. FLUCONAZOLE [Concomitant]
     Indication: ANTIFUNGAL PROPHYLAXIS
     Dosage: UNK
     Route: 065
     Dates: start: 20110330, end: 20110616
  18. LEUCOVORIN CALCIUM [Concomitant]
     Indication: DRUG TOXICITY PROPHYLAXIS
     Dosage: UNK
     Route: 065
     Dates: start: 20110926
  19. GRANISETRON HCL [Concomitant]
     Dosage: UNK
     Route: 065
     Dates: start: 20110621, end: 20110621
  20. FLUDARABINE PHOSPHATE [Concomitant]
     Dosage: UNK
     Route: 065
     Dates: start: 20110617, end: 20110620
  21. CYCLOPHOSPHAMIDE [Concomitant]
     Indication: PRODUCT USED FOR UNKNOWN INDICATION
     Dosage: UNK
     Route: 065
     Dates: start: 20110331, end: 20110403
  22. SODIUM BICARBONATE [Concomitant]
     Dosage: UNK
     Route: 065
     Dates: start: 20110619, end: 20110620
  23. TOTAL BODY IRRADIATION [Concomitant]
     Indication: BONE MARROW CONDITIONING REGIMEN
     Dosage: UNK
     Route: 065
     Dates: start: 20110404, end: 20110404
  24. THYMOGLOBULIN [Suspect]
     Indication: BONE MARROW CONDITIONING REGIMEN
     Dosage: 63 MG, QD
     Route: 042
     Dates: start: 20110331, end: 20110403
  25. ACYCLOVIR [Concomitant]
     Dosage: UNK
     Route: 065
     Dates: start: 20110906
  26. ACYCLOVIR [Concomitant]
     Dosage: UNK
     Route: 065
     Dates: start: 20110709, end: 20110905
  27. URSODESOXYCHOLIC ACID [Concomitant]
     Indication: PROPHYLAXIS
     Dosage: UNK
     Route: 065
     Dates: start: 20110330, end: 20110811
  28. MYCOPHENOLATE MOFETIL [Concomitant]
     Indication: PROPHYLAXIS AGAINST GRAFT VERSUS HOST DISEASE
     Dosage: UNK
     Route: 065
     Dates: start: 20110412, end: 20110502
  29. MYCOPHENOLATE MOFETIL [Concomitant]
     Dosage: UNK
     Route: 065
     Dates: start: 20110629, end: 20110719
  30. OMEPRAZOLE [Concomitant]
     Dosage: UNK
     Route: 065
     Dates: start: 20110909
  31. OMEPRAZOLE [Concomitant]
     Dosage: UNK
     Route: 065
     Dates: start: 20110630, end: 20110909
  32. HEPARIN SODIUM [Concomitant]
     Dosage: UNK
     Route: 065
     Dates: start: 20110617, end: 20110807
  33. DEXAMETHASONE [Concomitant]
     Dosage: UNK
     Route: 065
     Dates: start: 20110621, end: 20110621
  34. CONCENTRATED GLYCERIN FRUCTOSE [Concomitant]
     Dosage: UNK
     Route: 065
     Dates: start: 20110621, end: 20110621
  35. HEPARIN SODIUM [Concomitant]
     Indication: PROPHYLAXIS
     Dosage: UNK
     Route: 065
     Dates: start: 20110330, end: 20110517
  36. METHYLPREDNISOLONE SODIUM SUCCINATE [Concomitant]
     Indication: PREMEDICATION
     Dosage: UNK
     Route: 065
     Dates: start: 20110331, end: 20110403
  37. DEXAMETHASONE [Concomitant]
     Indication: PROPHYLAXIS OF NAUSEA AND VOMITING
     Dosage: UNK
     Route: 065
     Dates: start: 20110404, end: 20110404
  38. HAPTOGLOBINS [Concomitant]
     Indication: PROPHYLAXIS
     Dosage: UNK
     Route: 065
     Dates: start: 20110405, end: 20110405
  39. FLUCONAZOLE [Concomitant]
     Dosage: UNK
     Route: 065
     Dates: start: 20110926
  40. SULFAMETHOXAZOLE W [Concomitant]
     Dosage: UNK
     Route: 065
     Dates: start: 20110801, end: 20110805
  41. MAGNESIUM OXIDE [Concomitant]
     Indication: CONSTIPATION PROPHYLAXIS
     Dosage: UNK
     Route: 065
     Dates: start: 20100126, end: 20110806
  42. ETIZOLAM [Concomitant]
     Indication: PROPHYLAXIS OF NAUSEA AND VOMITING
     Dosage: UNK
     Route: 065
     Dates: start: 20110701, end: 20110811
  43. TACROLIMUS [Concomitant]
     Indication: PROPHYLAXIS AGAINST GRAFT VERSUS HOST DISEASE
     Dosage: UNK
     Route: 065
     Dates: start: 20110916
  44. GRANISETRON HCL [Concomitant]
     Dosage: UNK
     Route: 065
     Dates: start: 20110404, end: 20110404
  45. SODIUM BICARBONATE [Concomitant]
     Indication: PROPHYLAXIS
     Dosage: UNK
     Route: 065
     Dates: start: 20110331, end: 20110403
  46. CORD BLOOD TRANSPLANTATION [Concomitant]
     Indication: APLASTIC ANAEMIA
     Dosage: UNK
     Route: 065
     Dates: start: 20110622, end: 20110622
  47. ITRACONAZOLE [Concomitant]
     Indication: ANTIFUNGAL PROPHYLAXIS
     Dosage: UNK
     Route: 065
     Dates: start: 20110604, end: 20110609
  48. GRANISETRON HCL [Concomitant]
     Indication: PROPHYLAXIS OF NAUSEA AND VOMITING
     Dosage: UNK
     Route: 065
     Dates: start: 20110331, end: 20110403
  49. FLUDARABINE PHOSPHATE [Concomitant]
     Indication: PRODUCT USED FOR UNKNOWN INDICATION
     Dosage: UNK
     Route: 065
     Dates: start: 20110331, end: 20110403
  50. MELPHALAN HYDROCHLORIDE [Concomitant]
     Indication: PRODUCT USED FOR UNKNOWN INDICATION
     Dosage: UNK
     Route: 065
     Dates: start: 20110619, end: 20110620
  51. METOCLOPRAMIDE [Concomitant]
     Indication: PROPHYLAXIS OF NAUSEA AND VOMITING
     Dosage: UNK
     Route: 065
     Dates: start: 20110412, end: 20110630
  52. LEUCOVORIN CALCIUM [Concomitant]
     Dosage: UNK
     Route: 065
     Dates: start: 20110811, end: 20110925
  53. CONCENTRATED GLYCERIN FRUCTOSE [Concomitant]
     Indication: PROPHYLAXIS
     Dosage: UNK
     Route: 065
     Dates: start: 20110404, end: 20110404
  54. METHOTREXATE [Concomitant]
     Indication: PROPHYLAXIS AGAINST GRAFT VERSUS HOST DISEASE
     Dosage: UNK
     Route: 065
     Dates: start: 20110406, end: 20110416

REACTIONS (17)
  - BK VIRUS INFECTION [None]
  - DECREASED APPETITE [None]
  - ENGRAFT FAILURE [None]
  - NEUTROPENIA [None]
  - INFECTION [None]
  - HAEMORRHAGE INTRACRANIAL [None]
  - PYREXIA [None]
  - ACUTE GRAFT VERSUS HOST DISEASE IN SKIN [None]
  - CEREBRAL TOXOPLASMOSIS [None]
  - RESPIRATORY TRACT INFECTION [None]
  - LIVER DISORDER [None]
  - HYPOMAGNESAEMIA [None]
  - ACUTE GRAFT VERSUS HOST DISEASE [None]
  - MENINGITIS TOXOPLASMAL [None]
  - BRAIN OEDEMA [None]
  - DIARRHOEA [None]
  - SKIN INFECTION [None]
